FAERS Safety Report 10676040 (Version 2)
Quarter: 2015Q2

REPORT INFORMATION
  Report Type: Report from Study
  Country: FR (occurrence: FR)
  Receive Date: 20141225
  Receipt Date: 20150427
  Transmission Date: 20150821
  Serious: Yes (Hospitalization)
  Sender: FDA-Public Use
  Company Number: PHHY2014FR166601

PATIENT
  Age: 90 Year
  Sex: Male

DRUGS (3)
  1. ICL670A [Suspect]
     Active Substance: DEFERASIROX
     Indication: IRON OVERLOAD
     Dosage: 1000 MG, UNK
     Route: 048
     Dates: start: 20140701, end: 20140821
  2. PREVISCAN [Concomitant]
     Active Substance: FLUINDIONE
     Indication: CARDIAC DISORDER
     Route: 065
  3. ZOLADEX [Concomitant]
     Active Substance: GOSERELIN ACETATE
     Indication: PROSTATE CANCER
     Dosage: UNK
     Route: 065
     Dates: start: 2012

REACTIONS (9)
  - Vomiting [Recovered/Resolved]
  - General physical health deterioration [Recovered/Resolved]
  - Cardiac failure [Recovering/Resolving]
  - Skin disorder [Unknown]
  - Anaemia [Unknown]
  - Nausea [Recovered/Resolved]
  - Decreased appetite [Recovered/Resolved]
  - Malnutrition [Unknown]
  - Orthopnoea [Recovering/Resolving]

NARRATIVE: CASE EVENT DATE: 20140818
